FAERS Safety Report 8421129-7 (Version None)
Quarter: 2012Q2

REPORT INFORMATION
  Report Type: 
  Country: None (occurrence: None)
  Receive Date: 20120604
  Receipt Date: 20120604
  Transmission Date: 20120825
  Serious: Yes (Hospitalization)
  Sender: FDA-Public Use
  Company Number: None

PATIENT
  Sex: Male
  Weight: 98 kg

DRUGS (6)
  1. PREDNISONE TAB [Suspect]
     Dosage: 3220 MG
     Dates: end: 20120528
  2. DAUNORUBICIN HCL [Suspect]
     Dosage: 228.5 MG
     Dates: end: 20120524
  3. PEG-L-ASPARAGINASE [Suspect]
     Dosage: 5750 IU
     Dates: end: 20120506
  4. METHOTREXATE [Suspect]
     Dosage: 15 MG
     Dates: end: 20120510
  5. VINCRISTINE SULFATE [Suspect]
     Dosage: 8 MG
     Dates: end: 20120524
  6. CYTARABINE [Suspect]
     Dosage: 70 MG
     Dates: end: 20120503

REACTIONS (15)
  - HALLUCINATION, AUDITORY [None]
  - SELF INJURIOUS BEHAVIOUR [None]
  - SUPERIOR SAGITTAL SINUS THROMBOSIS [None]
  - AGGRESSION [None]
  - HEAD TITUBATION [None]
  - HALLUCINATION, VISUAL [None]
  - THINKING ABNORMAL [None]
  - MEMORY IMPAIRMENT [None]
  - ABNORMAL BEHAVIOUR [None]
  - EXCESSIVE EYE BLINKING [None]
  - PERSONALITY CHANGE [None]
  - CONFUSIONAL STATE [None]
  - INSOMNIA [None]
  - MENTAL STATUS CHANGES [None]
  - EUPHORIC MOOD [None]
